FAERS Safety Report 20456598 (Version 1)
Quarter: 2022Q1

REPORT INFORMATION
  Report Type: Spontaneous
  Country: US (occurrence: US)
  Receive Date: 20220210
  Receipt Date: 20220210
  Transmission Date: 20220423
  Serious: No
  Sender: FDA-Public Use
  Company Number: US-TAKEDA-2022TUS009340

PATIENT
  Sex: Female
  Weight: 59 kg

DRUGS (2)
  1. DEXILANT [Suspect]
     Active Substance: DEXLANSOPRAZOLE
     Indication: Hernia
     Dosage: 60 MILLIGRAM
     Route: 065
     Dates: start: 202106
  2. DEXILANT [Suspect]
     Active Substance: DEXLANSOPRAZOLE
     Dosage: 30 MILLIGRAM, QD
     Route: 065

REACTIONS (4)
  - No adverse event [Unknown]
  - Product use in unapproved indication [Unknown]
  - Wrong technique in product usage process [Unknown]
  - Product use complaint [Unknown]
